FAERS Safety Report 4952943-8 (Version None)
Quarter: 2006Q1

REPORT INFORMATION
  Report Type: 
  Country: None (occurrence: None)
  Receive Date: 20060320
  Receipt Date: 20060309
  Transmission Date: 20060701
  Serious: Yes (Other)
  Sender: FDA-Public Use
  Company Number: CHPA2006US02662

PATIENT
  Age: 61 Year
  Sex: Female
  Weight: 54.4 kg

DRUGS (3)
  1. PRIVATE LABEL STEP 1 21 MG (NCH)(NICOTINE) TRANS-THERAPEUTIC SYSTEM [Suspect]
     Indication: SMOKING CESSATION THERAPY
     Dosage: 21 MG QD TRANSDERMAL
     Route: 062
  2. ANTI-ASTHMATICS [Concomitant]
  3. RESPIRATORY TRACT DRUGS [Concomitant]

REACTIONS (3)
  - INTRACARDIAC THROMBUS [None]
  - MALAISE [None]
  - PULMONARY THROMBOSIS [None]
